FAERS Safety Report 6965152 (Version 4)
Quarter: 2013Q4

REPORT INFORMATION
  Report Type: Report from Study
  Country: IT (occurrence: IT)
  Receive Date: 20090409
  Receipt Date: 20131028
  Transmission Date: 20140711
  Serious: Yes (Hospitalization)
  Sender: FDA-Public Use
  Company Number: IT-BAYER-200917959GPV

PATIENT
  Age: 81 Year
  Sex: Male
  Weight: 65 kg

DRUGS (14)
  1. SORAFENIB (RAF KINASE INHIBITOR) [Suspect]
     Indication: HEPATOCELLULAR CARCINOMA
     Route: 048
     Dates: start: 20090220, end: 20090316
  2. GLIBOMET [Concomitant]
     Indication: DIABETES MELLITUS
     Dosage: DAILY DOSE 200 MG UNK
     Route: 048
     Dates: start: 2005
  3. NEXIUM [Concomitant]
     Indication: GASTRITIS
     Dosage: 20 UNK
     Route: 048
     Dates: start: 2005, end: 20090316
  4. NORVASC [Concomitant]
     Indication: HYPERTENSION
     Dosage: DAILY DOSE 10 MG
     Route: 048
     Dates: start: 200707
  5. NAPRILENE [Concomitant]
     Indication: HYPERTENSION
     Dosage: 5 UNK
     Route: 048
     Dates: start: 200707, end: 20090316
  6. INDERAL [Concomitant]
     Indication: VARICES OESOPHAGEAL
     Dosage: 60 UNK
     Route: 048
     Dates: start: 2005, end: 20090316
  7. LASIX [Concomitant]
     Indication: ASCITES
     Dosage: 100 UNK
     Route: 048
     Dates: start: 200902, end: 20090402
  8. LASIX [Concomitant]
     Indication: OEDEMA
  9. LAEVOLAC [Concomitant]
     Indication: ENCEPHALOPATHY
     Dosage: 3 UNK
     Route: 048
     Dates: start: 2005, end: 20090316
  10. LAEVOLAC [Concomitant]
     Indication: ENCEPHALOPATHY
     Dosage: 6 SPOONS
     Route: 048
     Dates: start: 20090402
  11. ENAPREN [Concomitant]
     Indication: HYPERTENSION
     Dosage: 5 UNK
     Route: 048
     Dates: start: 20090402, end: 20090409
  12. ACTRAPHANE [Concomitant]
     Indication: DIABETES MELLITUS
     Dosage: DAILY DOSE 12 U UNK
     Route: 030
     Dates: start: 2005
  13. LANSOX [Concomitant]
     Indication: GASTRITIS
     Dosage: DAILY DOSE 30 MG UNK
     Route: 048
     Dates: start: 20090402
  14. LAEVOLAC [Concomitant]
     Dosage: 6 SPOONS UNK
     Route: 048
     Dates: start: 20090402

REACTIONS (4)
  - Hepatic function abnormal [Not Recovered/Not Resolved]
  - Hepatic function abnormal [Not Recovered/Not Resolved]
  - Lymphopenia [Recovered/Resolved]
  - Ascites [Not Recovered/Not Resolved]
